FAERS Safety Report 20932900 (Version 1)
Quarter: 2022Q2

REPORT INFORMATION
  Report Type: Spontaneous
  Country: ES (occurrence: ES)
  Receive Date: 20220608
  Receipt Date: 20220608
  Transmission Date: 20220721
  Serious: Yes (Other)
  Sender: FDA-Public Use
  Company Number: None

PATIENT
  Age: 71 Year
  Sex: Male

DRUGS (5)
  1. AMLODIPINE [Suspect]
     Active Substance: AMLODIPINE BESYLATE
     Indication: Hypertension
     Dosage: 5.0MG EC, STRENGTH: 5 MG, 30 TABLETS
     Route: 048
     Dates: start: 20200114
  2. LOSARTAN POTASSIUM [Suspect]
     Active Substance: LOSARTAN POTASSIUM
     Indication: Hypertension
     Dosage: 100.0 MG DE, STRENGTH 100MG, 28 TABLETS
     Route: 048
     Dates: start: 20191012
  3. GREGAL [Concomitant]
     Indication: Bronchitis chronic
     Dosage: 18.0 MCG C/24 H, GREGAL 10 MICROGRAMS/DELIVERY DOSE, 30 CAPSULES + 1 INHALER
     Route: 050
     Dates: start: 20200915
  4. VENTOLIN [Concomitant]
     Active Substance: ALBUTEROL SULFATE
     Indication: Bronchitis chronic
     Dosage: 300 MICROGRAM DAILY; VENTOLIN 100 MICROGRAMS/INHALATION, PRESSURE PACK INHALATION, SUSPENSION, 1 INH
     Route: 050
     Dates: start: 20191011
  5. SYMBICORT [Concomitant]
     Active Substance: BUDESONIDE\FORMOTEROL FUMARATE DIHYDRATE
     Indication: Bronchitis chronic
     Dosage: 1.0 PUFF C/12 H, SYMBICORT TURBUHALER 160 MICROGRAMS/4.5 MICROGRAMS, 1 INHALER OF 120 DOSES
     Route: 050
     Dates: start: 20201023

REACTIONS (2)
  - Erectile dysfunction [Unknown]
  - Erectile dysfunction [Unknown]

NARRATIVE: CASE EVENT DATE: 20220406
